FAERS Safety Report 7950309-X (Version None)
Quarter: 2011Q4

REPORT INFORMATION
  Report Type: 
  Country: None (occurrence: None)
  Receive Date: 20111130
  Receipt Date: 20111117
  Transmission Date: 20120403
  Serious: Yes (Hospitalization)
  Sender: FDA-Public Use
  Company Number: US-BAYER-2011-046642

PATIENT
  Age: 17 Year
  Sex: Female
  Weight: 125 kg

DRUGS (5)
  1. RANITIDINE [Concomitant]
     Indication: ULCER
     Dosage: 150 MG, UNK
     Route: 048
     Dates: start: 20090917
  2. AZITHROMYCIN [Concomitant]
     Indication: INFECTION
     Dosage: 250 MG, UNK
     Route: 048
     Dates: start: 20091002
  3. CEFDINIR [Concomitant]
     Indication: INFECTION
     Dosage: 300 MG, UNK
     Route: 048
     Dates: start: 20090917
  4. YAZ [Suspect]
     Indication: ORAL CONTRACEPTION
     Dosage: UNK
     Dates: start: 20090218, end: 20100228
  5. YAZ [Suspect]
     Indication: MENSTRUATION IRREGULAR

REACTIONS (2)
  - CHOLECYSTITIS CHRONIC [None]
  - GALLBLADDER DISORDER [None]
